FAERS Safety Report 16304861 (Version 1)
Quarter: 2019Q2

REPORT INFORMATION
  Report Type: Spontaneous
  Country: US (occurrence: US)
  Receive Date: 20190408
  Receipt Date: 20190408
  Transmission Date: 20190711
  Serious: No
  Sender: FDA-Public Use
  Company Number: None

PATIENT
  Age: 60 Year
  Sex: Female
  Weight: 80.74 kg

DRUGS (2)
  1. LITHIUM CARBONATE 300MG [Suspect]
     Active Substance: LITHIUM CARBONATE
     Indication: BIPOLAR I DISORDER
     Route: 048
     Dates: start: 20190125
  2. TRIAMTERENE-HCTZ [Suspect]
     Active Substance: HYDROCHLOROTHIAZIDE\TRIAMTERENE
     Indication: CARDIAC FAILURE CONGESTIVE
     Dosage: 3.75-25 MG ONCE DAILY PO
     Route: 048
     Dates: start: 20190219

REACTIONS (1)
  - Antipsychotic drug level decreased [None]
